FAERS Safety Report 5841110-1 (Version None)
Quarter: 2008Q3

REPORT INFORMATION
  Report Type: 
  Country: None (occurrence: None)
  Receive Date: 20080811
  Receipt Date: 20080811
  Transmission Date: 20090109
  Serious: Yes (Other)
  Sender: FDA-Public Use
  Company Number: None

PATIENT
  Sex: Female
  Weight: 18 kg

DRUGS (1)
  1. CLONAZEPAM (KLONIPIN) [Suspect]
     Indication: CONVULSION
     Dosage: 0.25MG 3 TABS + PRN ORAL
     Route: 048
     Dates: start: 20041124

REACTIONS (2)
  - MYOCLONIC EPILEPSY [None]
  - PHARMACEUTICAL PRODUCT COMPLAINT [None]
